FAERS Safety Report 16686034 (Version 1)
Quarter: 2019Q3

REPORT INFORMATION
  Report Type: Spontaneous
  Country: FR (occurrence: FR)
  Receive Date: 20190809
  Receipt Date: 20190809
  Transmission Date: 20191004
  Serious: Yes (Other)
  Sender: FDA-Public Use
  Company Number: FR-ACCORD-150614

PATIENT
  Age: 20 Year
  Sex: Female
  Weight: 66 kg

DRUGS (9)
  1. LOXAPAC [Concomitant]
     Active Substance: LOXAPINE
     Route: 048
  2. LANSOPRAZOLE. [Concomitant]
     Active Substance: LANSOPRAZOLE
     Route: 048
  3. DUPHALAC [Concomitant]
     Active Substance: LACTULOSE
     Route: 048
  4. VALIUM [Concomitant]
     Active Substance: DIAZEPAM
     Route: 048
  5. CLOZAPINE. [Suspect]
     Active Substance: CLOZAPINE
     Indication: MENTAL DISORDER
     Route: 048
     Dates: start: 201903, end: 201905
  6. MESTINON [Concomitant]
     Active Substance: PYRIDOSTIGMINE BROMIDE
     Route: 048
  7. PROPRANOLOL [Concomitant]
     Active Substance: PROPRANOLOL HYDROCHLORIDE
     Route: 048
  8. IMOVANE [Concomitant]
     Active Substance: ZOPICLONE
     Route: 048
  9. SULFARLEM S 25 [Concomitant]
     Route: 048

REACTIONS (4)
  - Antipsychotic drug level above therapeutic [Unknown]
  - Apraxia [Recovered/Resolved]
  - Sedation complication [Recovered/Resolved]
  - Enuresis [Recovered/Resolved]

NARRATIVE: CASE EVENT DATE: 201904
